FAERS Safety Report 24559343 (Version 1)
Quarter: 2024Q4

REPORT INFORMATION
  Report Type: Spontaneous
  Country: US (occurrence: None)
  Receive Date: 20241028
  Receipt Date: 20241028
  Transmission Date: 20250115
  Serious: No
  Sender: Public
  Company Number: None

PATIENT

DRUGS (1)
  1. HOMEOPATHICS [Suspect]
     Active Substance: HOMEOPATHICS
     Indication: Nasopharyngitis
     Dosage: FREQUENCY : ONCE;?
     Dates: start: 20240901, end: 20240902

REACTIONS (4)
  - Anosmia [None]
  - SARS-CoV-2 test negative [None]
  - Burning sensation [None]
  - Recalled product [None]

NARRATIVE: CASE EVENT DATE: 20240901
